FAERS Safety Report 22006633 (Version 1)
Quarter: 2023Q1

REPORT INFORMATION
  Report Type: Spontaneous
  Country: None (occurrence: US)
  Receive Date: 20230217
  Receipt Date: 20230217
  Transmission Date: 20230418
  Serious: No
  Sender: FDA-Public Use
  Company Number: US-P+L Developments of Newyork Corporation-2138068

PATIENT
  Sex: Male

DRUGS (2)
  1. DOCOSANOL [Suspect]
     Active Substance: DOCOSANOL
     Indication: Herpes virus infection
     Route: 065
  2. DOCOSANOL [Suspect]
     Active Substance: DOCOSANOL
     Route: 065

REACTIONS (3)
  - Herpes virus infection [Unknown]
  - Condition aggravated [Unknown]
  - Therapeutic product effect variable [Unknown]
